FAERS Safety Report 23340536 (Version 1)
Quarter: 2023Q4

REPORT INFORMATION
  Report Type: Spontaneous
  Country: US (occurrence: US)
  Receive Date: 20231227
  Receipt Date: 20231227
  Transmission Date: 20240110
  Serious: No
  Sender: FDA-Public Use
  Company Number: US-CIPLA LTD.-2023US06839

PATIENT

DRUGS (1)
  1. LENALIDOMIDE [Suspect]
     Active Substance: LENALIDOMIDE
     Indication: Plasma cell myeloma
     Dosage: 25 MILLIGRAM, QD FOR 14 DAYS ON THEN 7 DAYS OF
     Route: 065

REACTIONS (4)
  - Taste disorder [Unknown]
  - Parosmia [Unknown]
  - Nervousness [Unknown]
  - Feeling jittery [Unknown]
